FAERS Safety Report 7079327-3 (Version None)
Quarter: 2010Q4

REPORT INFORMATION
  Report Type: 
  Country: None (occurrence: None)
  Receive Date: 20101102
  Receipt Date: 20100513
  Transmission Date: 20110411
  Serious: No
  Sender: FDA-Public Use
  Company Number: A0859575A

PATIENT
  Age: 71 Year
  Sex: Male

DRUGS (2)
  1. RYTHMOL SR [Suspect]
     Dosage: 425CAP TWICE PER DAY
     Route: 048
  2. MULTIPLE MEDICATIONS [Concomitant]

REACTIONS (2)
  - DRUG INEFFECTIVE [None]
  - OVERDOSE [None]
